FAERS Safety Report 10629613 (Version 1)
Quarter: 2014Q4

REPORT INFORMATION
  Report Type: Spontaneous
  Country: US (occurrence: US)
  Receive Date: 20141205
  Receipt Date: 20141205
  Transmission Date: 20150529
  Serious: No
  Sender: FDA-Public Use
  Company Number: US-BRISTOL-MYERS SQUIBB COMPANY-21459466

PATIENT
  Age: 59 Year
  Sex: Male
  Weight: 104.31 kg

DRUGS (1)
  1. ABILIFY [Suspect]
     Active Substance: ARIPIPRAZOLE
     Indication: DEPRESSION
     Dosage: DOSE INCREASE:10MG
     Dates: end: 2014

REACTIONS (5)
  - Motor dysfunction [Unknown]
  - Insomnia [Unknown]
  - Anxiety [Unknown]
  - Tremor [Unknown]
  - Cough [Unknown]
